FAERS Safety Report 20478440 (Version 2)
Quarter: 2022Q1

REPORT INFORMATION
  Report Type: Spontaneous
  Country: NL (occurrence: NL)
  Receive Date: 20220216
  Receipt Date: 20220321
  Transmission Date: 20220423
  Serious: Yes (Hospitalization)
  Sender: FDA-Public Use
  Company Number: None

PATIENT
  Age: 2 Year
  Sex: Female
  Weight: 12.6 kg

DRUGS (9)
  1. VANCOMYCIN [Suspect]
     Active Substance: VANCOMYCIN
     Indication: Sepsis
     Dosage: 800 MILLIGRAM DAILY; 4 DAILY 200 MGVANCOMYCIN INFVLST 10MG/ML / BRAND NAME NOT SPECIFIED,THERAPY END
     Route: 065
     Dates: start: 20210618
  2. VANCOMYCIN [Suspect]
     Active Substance: VANCOMYCIN
     Dosage: 1200 MILLIGRAM DAILY; 4 TIMES 300 MG,VANCOMYCIN INFVLST 10MG/ML / BRAND NAME NOT SPECIFIED,THERAPY S
     Route: 065
     Dates: end: 20210621
  3. URSODEOXYCHOLIC ACID/URSOCHOL [Concomitant]
     Dosage: 250 MILLIGRAM DAILY; TWICE DAILY 125 MG,URSODEOXYCHOLIC ACID TABLET 300MG / URSOCHOL TABLET 300MG,TH
  4. Glucogel glucose gel [Concomitant]
     Dosage: IF NECESSARY,THERAPY START DATE :THERAPY END DATE:ASKU
  5. TAUROLIDINE [Concomitant]
     Active Substance: TAUROLIDINE
     Dosage: 2 ML DAILY; 1 DAY 2 ML,TAUROLIDINE INSTILLATION VLST 20MG/ML / BRAND NAME NOT SPECIFIED,THERAPY STAR
  6. WARFARIN [Concomitant]
     Active Substance: WARFARIN
     Dosage: .6 ML DAILY; 1 DAILY 0.6 ML,WARFARINE INJVLST 5MG/ML / BRAND NAME NOT SPECIFIED,THERAPY START DATE :
  7. METRONIDAZOLE [Concomitant]
     Active Substance: METRONIDAZOLE
     Dosage: 3 DD 130,THERAPY START DATE :THERAPY END DATE :ASKU,UNIT DOSE:130MG
  8. SODIUM CHLORIDE [Concomitant]
     Active Substance: SODIUM CHLORIDE
     Dosage: IF NECESSARY,SODIUM CHLORIDE INFVLST 9MG/ML / BRAND NAME NOT SPECIFIED,THERAPY START DATE :THERAPY E
  9. CEFUROXIME [Concomitant]
     Active Substance: CEFUROXIME
     Dosage: 1320 MILLIGRAM DAILY; 3 DAILY 440 MG,CEFUROXIM INFUSE / BRAND NAME NOT SPECIFIED,THERAPY START DATE
     Dates: start: 20210618, end: 20210621

REACTIONS (2)
  - Alanine aminotransferase increased [Recovered/Resolved]
  - Aspartate aminotransferase increased [Recovered/Resolved]

NARRATIVE: CASE EVENT DATE: 20210620
